FAERS Safety Report 8548532 (Version 3)
Quarter: 2012Q4

REPORT INFORMATION
  Report Type: 
  Country: FR (occurrence: FR)
  Receive Date: 20120507
  Receipt Date: 20121228
  Transmission Date: 20130627
  Serious: Yes (Death, Hospitalization, Other)
  Sender: FDA-Public Use
  Company Number: PHHY2012FR038023

PATIENT
  Age: 69 Year
  Sex: Male
  Weight: 70 kg

DRUGS (3)
  1. AFINITOR [Suspect]
     Indication: RENAL CANCER METASTATIC
     Dosage: 10 mg, QD
     Route: 046
     Dates: start: 20120208
  2. AFINITOR [Suspect]
     Dosage: 5 mg, daily
     Dates: start: 201203, end: 20120315
  3. METFORMIN [Concomitant]
     Indication: TYPE 2 DIABETES MELLITUS

REACTIONS (21)
  - Interstitial lung disease [Fatal]
  - Dyspnoea [Fatal]
  - Cough [Fatal]
  - Fatigue [Fatal]
  - Malaise [Fatal]
  - Wheezing [Fatal]
  - Rales [Fatal]
  - Pulmonary mass [Fatal]
  - Malnutrition [Unknown]
  - General physical health deterioration [Unknown]
  - Diarrhoea [Unknown]
  - Hypothermia [Unknown]
  - Coma [Unknown]
  - Sepsis [Unknown]
  - Anaemia [Unknown]
  - Renal failure acute [Unknown]
  - Hyperkalaemia [Unknown]
  - Hyperglycaemia [Unknown]
  - Hypotension [Unknown]
  - Leukocytosis [Unknown]
  - Rash macular [Unknown]
